FAERS Safety Report 22188086 (Version 3)
Quarter: 2023Q2

REPORT INFORMATION
  Report Type: Report from Study
  Country: US (occurrence: US)
  Receive Date: 20230408
  Receipt Date: 20230502
  Transmission Date: 20230721
  Serious: Yes (Other)
  Sender: FDA-Public Use
  Company Number: US-002147023-NVSC2023US078755

PATIENT
  Age: 45 Year
  Sex: Female

DRUGS (2)
  1. PREDNISONE [Suspect]
     Active Substance: PREDNISONE
     Indication: Lupus nephritis
     Dosage: 60 MG, QD
     Route: 065
  2. PREDNISONE [Suspect]
     Active Substance: PREDNISONE
     Indication: Systemic lupus erythematosus

REACTIONS (27)
  - Myocardial infarction [Unknown]
  - Femur fracture [Unknown]
  - Pelvic fracture [Unknown]
  - Immunodeficiency [Unknown]
  - Systemic lupus erythematosus [Unknown]
  - Pain [Unknown]
  - Disturbance in attention [Unknown]
  - Fatigue [Unknown]
  - Arthralgia [Unknown]
  - Brain fog [Unknown]
  - Haemorrhage [Unknown]
  - Tendon disorder [Unknown]
  - Mobility decreased [Unknown]
  - Foot deformity [Unknown]
  - Pain in extremity [Unknown]
  - Obsessive-compulsive disorder [Unknown]
  - Fall [Unknown]
  - Tachycardia [Unknown]
  - Cardiac output decreased [Unknown]
  - Pallor [Unknown]
  - Anxiety [Unknown]
  - Raynaud^s phenomenon [Unknown]
  - Osteoporosis [Unknown]
  - Weight increased [Unknown]
  - Tendon rupture [Unknown]
  - Skin discolouration [Unknown]
  - Depression [Unknown]

NARRATIVE: CASE EVENT DATE: 20100101
